FAERS Safety Report 21247820 (Version 4)
Quarter: 2022Q3

REPORT INFORMATION
  Report Type: Spontaneous
  Country: US (occurrence: US)
  Receive Date: 20220824
  Receipt Date: 20220928
  Transmission Date: 20221027
  Serious: Yes (Other)
  Sender: FDA-Public Use
  Company Number: US-ORGANON-O2208USA001701

PATIENT
  Sex: Female
  Weight: 89.796 kg

DRUGS (3)
  1. NEXPLANON [Suspect]
     Active Substance: ETONOGESTREL
     Indication: Contraception
     Dosage: 1 IMPLANT OF 68 MILLIGRAM, LEFT ARM
     Route: 059
     Dates: start: 20220318, end: 20220728
  2. NEXPLANON [Suspect]
     Active Substance: ETONOGESTREL
     Indication: Contraception
     Dosage: 1 IMPLANT IN RIGHT UPPER ARM
     Route: 058
     Dates: start: 20220818
  3. CETIRIZINE [Concomitant]
     Active Substance: CETIRIZINE HYDROCHLORIDE
     Dosage: UNK
     Route: 048

REACTIONS (7)
  - Device expulsion [Recovered/Resolved]
  - Implant site abscess [Not Recovered/Not Resolved]
  - Dysmenorrhoea [Unknown]
  - Menstruation delayed [Unknown]
  - Medical device site scab [Unknown]
  - Heavy menstrual bleeding [Recovered/Resolved]
  - Device placement issue [Not Recovered/Not Resolved]

NARRATIVE: CASE EVENT DATE: 20220101
